FAERS Safety Report 12484508 (Version 2)
Quarter: 2017Q1

REPORT INFORMATION
  Report Type: Spontaneous
  Country: PE (occurrence: PE)
  Receive Date: 20160621
  Receipt Date: 20170117
  Transmission Date: 20170428
  Serious: Yes (Hospitalization, Other)
  Sender: FDA-Public Use
  Company Number: PE-PFIZER INC-2016301605

PATIENT
  Age: 43 Year
  Sex: Male

DRUGS (1)
  1. NEURONTIN [Suspect]
     Active Substance: GABAPENTIN
     Indication: EPILEPSY
     Dosage: UNK

REACTIONS (7)
  - Infection [Recovered/Resolved]
  - Sleep apnoea syndrome [Recovered/Resolved]
  - Immunodeficiency [Unknown]
  - Pharyngitis [Recovered/Resolved]
  - Pneumonia [Recovered/Resolved]
  - Drug effect incomplete [Recovered/Resolved]
  - Dyspnoea [Unknown]
